FAERS Safety Report 4276184-5 (Version None)
Quarter: 2004Q1

REPORT INFORMATION
  Report Type: 
  Country: None (occurrence: None)
  Receive Date: 20040120
  Receipt Date: 20040120
  Transmission Date: 20041129
  Serious: Yes (Hospitalization)
  Sender: FDA-Public Use
  Company Number: None

PATIENT
  Age: 55 Year
  Sex: Female
  Weight: 106.8 kg

DRUGS (3)
  1. PHENYTOIN [Suspect]
     Indication: CONVULSION
     Dosage: 300 MG Q 12 H
     Dates: start: 20031215, end: 20040115
  2. PENICILLIN [Suspect]
     Indication: ENDOCARDITIS
     Dosage: 4 MILLION UNITS IV Q 4 H
     Route: 042
     Dates: start: 20031218, end: 20040102
  3. PENICILLIN [Suspect]
     Indication: MENINGITIS BACTERIAL
     Dosage: 4 MILLION UNITS IV Q 4 H
     Route: 042
     Dates: start: 20031218, end: 20040102

REACTIONS (2)
  - MARKEDLY REDUCED DIETARY INTAKE [None]
  - TOXIC EPIDERMAL NECROLYSIS [None]
